FAERS Safety Report 18933427 (Version 1)
Quarter: 2021Q1

REPORT INFORMATION
  Report Type: Spontaneous
  Country: JP (occurrence: JP)
  Receive Date: 20210224
  Receipt Date: 20210224
  Transmission Date: 20210420
  Serious: Yes (Other)
  Sender: FDA-Public Use
  Company Number: JP-BEH-2021128551

PATIENT
  Age: 26 Year
  Sex: Male
  Weight: 53 kg

DRUGS (4)
  1. IDELVION [Suspect]
     Active Substance: COAGULATION FACTOR IX RECOMBINANT HUMAN
     Dosage: 3500 INTERNATIONAL UNIT, TOT (ONE DAY)
     Route: 042
     Dates: start: 20210213, end: 20210213
  2. IDELVION [Suspect]
     Active Substance: COAGULATION FACTOR IX RECOMBINANT HUMAN
     Dosage: 3500 INTERNATIONAL UNIT, TOT (ONE DAY)
     Route: 042
     Dates: start: 20210213, end: 20210213
  3. IDELVION [Suspect]
     Active Substance: COAGULATION FACTOR IX RECOMBINANT HUMAN
     Indication: FACTOR IX DEFICIENCY
     Dosage: 3500 INTERNATIONAL UNIT, QOW (EVERY 14 DAYS)
     Route: 042
     Dates: start: 20200513
  4. IDELVION [Suspect]
     Active Substance: COAGULATION FACTOR IX RECOMBINANT HUMAN
     Indication: FACTOR IX DEFICIENCY
     Dosage: 3500 INTERNATIONAL UNIT, QOW (EVERY 14 DAYS)
     Route: 042
     Dates: start: 20200513

REACTIONS (1)
  - Fracture [Recovered/Resolved]

NARRATIVE: CASE EVENT DATE: 20210213
